FAERS Safety Report 7192676-3 (Version None)
Quarter: 2010Q4

REPORT INFORMATION
  Report Type: 
  Country: None (occurrence: None)
  Receive Date: 20101223
  Receipt Date: 20101223
  Transmission Date: 20110411
  Serious: No
  Sender: FDA-Public Use
  Company Number: BR-JNJFOC-20100304664

PATIENT
  Age: 24 Year
  Sex: Female
  Weight: 70 kg

DRUGS (2)
  1. ORTHO EVRA [Suspect]
     Indication: CONTRACEPTION
     Route: 062
  2. ORTHO EVRA [Suspect]
     Route: 062

REACTIONS (2)
  - CYSTITIS [None]
  - VAGINAL HAEMORRHAGE [None]
